FAERS Safety Report 16869433 (Version 1)
Quarter: 2019Q3

REPORT INFORMATION
  Report Type: Spontaneous
  Country: US (occurrence: US)
  Receive Date: 20190930
  Receipt Date: 20190930
  Transmission Date: 20191005
  Serious: Yes (Hospitalization, Other)
  Sender: FDA-Public Use
  Company Number: US-BAYER-2019-172824

PATIENT
  Age: 84 Year
  Sex: Male

DRUGS (1)
  1. SORAFENIB (RAF KINASE INHIBITOR) [Suspect]
     Active Substance: SORAFENIB
     Dosage: 400 MG, BID

REACTIONS (9)
  - Choking [Recovering/Resolving]
  - Oesophageal candidiasis [Recovering/Resolving]
  - Oral candidiasis [None]
  - Pathological fracture [None]
  - Nausea [Recovering/Resolving]
  - Anaemia [None]
  - Dysphagia [Recovering/Resolving]
  - Regurgitation [Recovering/Resolving]
  - Metastases to bone [None]
